FAERS Safety Report 25852683 (Version 3)
Quarter: 2025Q4

REPORT INFORMATION
  Report Type: Spontaneous
  Country: US (occurrence: US)
  Receive Date: 20250926
  Receipt Date: 20251011
  Transmission Date: 20260117
  Serious: No
  Sender: ABBVIE
  Company Number: US-ABBVIE-6469922

PATIENT
  Age: 68 Year
  Sex: Female
  Weight: 79 kg

DRUGS (5)
  1. LATISSE [Suspect]
     Active Substance: BIMATOPROST
     Indication: Eyelash changes
     Dosage: ONE DROP ON EACH EYE, FORM STRENGTH: 0.03 MILLIGRAM/MILLILITERS,
     Route: 061
     Dates: start: 2020
  2. METOPROLOL [Concomitant]
     Active Substance: METOPROLOL
     Indication: Blood pressure measurement
  3. VALSARTAN [Concomitant]
     Active Substance: VALSARTAN
     Indication: Blood pressure measurement
  4. CLOPIDOGREL [Concomitant]
     Active Substance: CLOPIDOGREL BISULFATE
     Indication: Anticoagulant therapy
  5. ATORVASTATIN [Concomitant]
     Active Substance: ATORVASTATIN
     Indication: Product used for unknown indication

REACTIONS (4)
  - Eyelash changes [Not Recovered/Not Resolved]
  - Madarosis [Not Recovered/Not Resolved]
  - Drug ineffective [Not Recovered/Not Resolved]
  - Product quality issue [Not Recovered/Not Resolved]

NARRATIVE: CASE EVENT DATE: 20250901
